FAERS Safety Report 17389645 (Version 2)
Quarter: 2020Q1

REPORT INFORMATION
  Report Type: Report from Study
  Country: None (occurrence: SE)
  Receive Date: 20200207
  Receipt Date: 20200310
  Transmission Date: 20200409
  Serious: Yes (Hospitalization)
  Sender: FDA-Public Use
  Company Number: SE-ABBVIE-19S-150-2784698-00

PATIENT
  Sex: Male

DRUGS (4)
  1. MADOPARK [Concomitant]
     Active Substance: BENSERAZIDE HYDROCHLORIDE\LEVODOPA
     Indication: PRODUCT USED FOR UNKNOWN INDICATION
  2. LEVODOPA/CARBIDOPA/ENTACAPONE [Concomitant]
     Active Substance: CARBIDOPA\ENTACAPONE\LEVODOPA
     Indication: PARKINSON^S DISEASE
     Dates: start: 20190517
  3. DUODOPA [Suspect]
     Active Substance: CARBIDOPA\LEVODOPA
     Indication: PARKINSON^S DISEASE
     Route: 050
     Dates: start: 20171127, end: 20190516
  4. STALEVO [Concomitant]
     Active Substance: CARBIDOPA\ENTACAPONE\LEVODOPA
     Indication: PRODUCT USED FOR UNKNOWN INDICATION
     Dosage: ANHYDROUS

REACTIONS (28)
  - Underdose [Unknown]
  - Anxiety [Unknown]
  - Therapeutic product effect delayed [Recovered/Resolved]
  - Vitamin B complex deficiency [Unknown]
  - Overdose [Unknown]
  - Sleep deficit [Recovered/Resolved]
  - Adverse event [Unknown]
  - Hyperkinesia [Recovered/Resolved]
  - Hypophagia [Recovered/Resolved]
  - Mobility decreased [Unknown]
  - Paralysis [Unknown]
  - Muscle spasms [Unknown]
  - On and off phenomenon [Unknown]
  - Musculoskeletal stiffness [Unknown]
  - Walking aid user [Recovered/Resolved]
  - Restlessness [Unknown]
  - Neuropathy peripheral [Not Recovered/Not Resolved]
  - Fatigue [Unknown]
  - Drug dependence [Unknown]
  - Paraesthesia [Unknown]
  - Intentional product misuse [Recovered/Resolved]
  - Hypoaesthesia [Unknown]
  - Weight decreased [Unknown]
  - Therapeutic product effect decreased [Unknown]
  - Somnolence [Unknown]
  - Feeling abnormal [Unknown]
  - Hallucination [Unknown]
  - Insomnia [Unknown]
